FAERS Safety Report 8286512-1 (Version None)
Quarter: 2012Q2

REPORT INFORMATION
  Report Type: 
  Country: None (occurrence: None)
  Receive Date: 20120416
  Receipt Date: 20120414
  Transmission Date: 20120825
  Serious: Yes (Other)
  Sender: FDA-Public Use
  Company Number: US-PFIZER INC-2012092923

PATIENT
  Sex: Male
  Weight: 74.83 kg

DRUGS (6)
  1. SIMVASTATIN [Concomitant]
     Indication: BLOOD CHOLESTEROL INCREASED
     Dosage: UNK
  2. CHANTIX [Suspect]
     Dosage: 1 MG, 2X/DAY
     Route: 048
     Dates: start: 20120401, end: 20120413
  3. BELLADONNA [Concomitant]
     Dosage: UNK
  4. HYDROCODONE [Concomitant]
     Dosage: UNK
  5. MIDODRINE [Concomitant]
     Dosage: UNK
  6. CHANTIX [Suspect]
     Indication: SMOKING CESSATION THERAPY
     Dosage: 0.5 MG, 1X/DAY
     Route: 048
     Dates: start: 20120406, end: 20120401

REACTIONS (9)
  - ABNORMAL BEHAVIOUR [None]
  - BLOOD TESTOSTERONE DECREASED [None]
  - HYPERHIDROSIS [None]
  - MENTAL DISORDER [None]
  - FEELING ABNORMAL [None]
  - SELF-INJURIOUS IDEATION [None]
  - IRRITABILITY [None]
  - MALAISE [None]
  - VOMITING [None]
